FAERS Safety Report 7675794-2 (Version None)
Quarter: 2011Q3

REPORT INFORMATION
  Report Type: 
  Country: None (occurrence: None)
  Receive Date: 20110810
  Receipt Date: 20110801
  Transmission Date: 20111222
  Serious: Yes (Hospitalization, Other)
  Sender: FDA-Public Use
  Company Number: US-ASTRAZENECA-2011SE31193

PATIENT
  Age: 84 Year
  Sex: Female

DRUGS (2)
  1. NEXIUM [Suspect]
     Route: 048
  2. PLAVIX [Interacting]
     Route: 065

REACTIONS (6)
  - ANGIOPLASTY [None]
  - GASTROOESOPHAGEAL REFLUX DISEASE [None]
  - DRUG INTERACTION [None]
  - MYOCARDIAL INFARCTION [None]
  - DRUG DOSE OMISSION [None]
  - CORONARY ARTERIAL STENT INSERTION [None]
